FAERS Safety Report 5772983-9 (Version None)
Quarter: 2008Q2

REPORT INFORMATION
  Report Type: 
  Country: None (occurrence: None)
  Receive Date: 20080613
  Receipt Date: 20080605
  Transmission Date: 20081010
  Serious: Yes (Other)
  Sender: FDA-Public Use
  Company Number: US-PFIZER INC-2008047593

PATIENT
  Sex: Male

DRUGS (3)
  1. CELEBREX [Suspect]
     Indication: OSTEOARTHRITIS
  2. LYRICA [Suspect]
     Indication: NEURALGIA
     Dates: start: 20071201, end: 20080602
  3. NAPROXEN [Concomitant]

REACTIONS (2)
  - OEDEMA PERIPHERAL [None]
  - RENAL DISORDER [None]
